FAERS Safety Report 19193955 (Version 1)
Quarter: 2021Q2

REPORT INFORMATION
  Report Type: Spontaneous
  Country: GR (occurrence: GR)
  Receive Date: 20210429
  Receipt Date: 20210429
  Transmission Date: 20210717
  Serious: Yes (Death, Hospitalization, Other)
  Sender: FDA-Public Use
  Company Number: GR-ACCORD-223550

PATIENT
  Age: 57 Year
  Sex: Female

DRUGS (1)
  1. DAPTOMYCIN. [Suspect]
     Active Substance: DAPTOMYCIN
     Indication: STAPHYLOCOCCAL INFECTION
     Dosage: AS SINGLE DOSE, 8 MG/KG BODY WEIGHT

REACTIONS (2)
  - Cholestatic liver injury [Fatal]
  - Drug-induced liver injury [Unknown]
